FAERS Safety Report 19426635 (Version 1)
Quarter: 2021Q2

REPORT INFORMATION
  Report Type: Spontaneous
  Country: CA (occurrence: CA)
  Receive Date: 20210617
  Receipt Date: 20210617
  Transmission Date: 20210717
  Serious: Yes (Death)
  Sender: FDA-Public Use
  Company Number: CA-TEVA-2021-CA-1921358

PATIENT
  Age: 21 Year
  Sex: Male
  Weight: 52 kg

DRUGS (4)
  1. FENTANYL. [Suspect]
     Active Substance: FENTANYL
     Route: 065
  2. FURANYL FENTANYL [Suspect]
     Active Substance: FURANYLFENTANYL
     Route: 065
  3. HYDROMORPHONE [Suspect]
     Active Substance: HYDROMORPHONE
     Route: 065
  4. MORPHINE [Suspect]
     Active Substance: MORPHINE
     Route: 065

REACTIONS (3)
  - Postmortem blood drug level increased [Fatal]
  - Opiates positive [Fatal]
  - Toxicity to various agents [Fatal]
